FAERS Safety Report 25599429 (Version 1)
Quarter: 2025Q3

REPORT INFORMATION
  Report Type: Spontaneous
  Country: GB (occurrence: GB)
  Receive Date: 20250724
  Receipt Date: 20250724
  Transmission Date: 20251021
  Serious: Yes (Death, Life-Threatening, Other)
  Sender: NOVO NORDISK
  Company Number: None

PATIENT
  Age: 70 Year
  Sex: Male
  Weight: 70 kg

DRUGS (1)
  1. SEMAGLUTIDE [Suspect]
     Active Substance: SEMAGLUTIDE
     Indication: Diabetes mellitus
     Dosage: 7 MG, QD

REACTIONS (7)
  - Asthenia [Unknown]
  - Disturbance in attention [Unknown]
  - Depressed mood [Unknown]
  - Completed suicide [Fatal]
  - Abnormal loss of weight [Unknown]
  - Fatigue [Unknown]
  - Medication error [Unknown]
